FAERS Safety Report 4353288-X (Version None)
Quarter: 2004Q2

REPORT INFORMATION
  Report Type: 
  Country: None (occurrence: None)
  Receive Date: 20040504
  Receipt Date: 20040504
  Transmission Date: 20050107
  Serious: Yes (Disabling)
  Sender: FDA-Public Use
  Company Number: None

PATIENT
  Age: 38 Year
  Sex: Female
  Weight: 62.5964 kg

DRUGS (1)
  1. EFFEXOR XR [Suspect]
     Indication: DEPRESSION
     Dosage: 1 CAPSUL DAILY ORAL
     Route: 048
     Dates: start: 20020501, end: 20040429

REACTIONS (15)
  - ABDOMINAL DISCOMFORT [None]
  - ABNORMAL DREAMS [None]
  - AMNESIA [None]
  - COGNITIVE DISORDER [None]
  - CONTUSION [None]
  - DRUG WITHDRAWAL SYNDROME [None]
  - IMPAIRED WORK ABILITY [None]
  - IRRITABILITY [None]
  - LETHARGY [None]
  - MOOD SWINGS [None]
  - SENSORY DISTURBANCE [None]
  - SLEEP DISORDER [None]
  - STOMACH DISCOMFORT [None]
  - VISUAL ACUITY REDUCED [None]
  - WEIGHT INCREASED [None]
